FAERS Safety Report 7494569-0 (Version None)
Quarter: 2011Q2

REPORT INFORMATION
  Report Type: 
  Country: None (occurrence: None)
  Receive Date: 20110520
  Receipt Date: 20110511
  Transmission Date: 20111010
  Serious: Yes (Hospitalization, Other)
  Sender: FDA-Public Use
  Company Number: PHHY2011US01733

PATIENT
  Sex: Female

DRUGS (7)
  1. AVONEX [Concomitant]
     Dosage: UNK UKN, UNK
     Dates: start: 20110307
  2. GILENYA [Suspect]
     Indication: MULTIPLE SCLEROSIS
     Dosage: 0.5 MG, QD
     Route: 048
     Dates: start: 20101228, end: 20110110
  3. GILENYA [Suspect]
     Dosage: 0.5 MG, QD
     Route: 048
     Dates: start: 20110201
  4. OXYBUTYNIN [Concomitant]
     Dosage: UNK
  5. NEURONTIN [Concomitant]
     Dosage: UNK
  6. CYMBALTA [Concomitant]
     Dosage: UNK
  7. MIRENA [Concomitant]
     Indication: INTRA-UTERINE CONTRACEPTIVE DEVICE INSERTION
     Dosage: UNK

REACTIONS (10)
  - MYCOPLASMA TEST POSITIVE [None]
  - BRONCHITIS [None]
  - ASTHENIA [None]
  - PNEUMONIA [None]
  - CHEST PAIN [None]
  - PAIN [None]
  - INFLUENZA LIKE ILLNESS [None]
  - COUGH [None]
  - RESPIRATORY TRACT CONGESTION [None]
  - BODY TEMPERATURE INCREASED [None]
